FAERS Safety Report 17170355 (Version 1)
Quarter: 2019Q4

REPORT INFORMATION
  Report Type: Spontaneous
  Country: FR (occurrence: FR)
  Receive Date: 20191218
  Receipt Date: 20191218
  Transmission Date: 20200122
  Serious: Yes (Other)
  Sender: FDA-Public Use
  Company Number: FR-PFIZER INC-2019540515

PATIENT
  Age: 45 Year
  Sex: Female

DRUGS (8)
  1. ZITHROMAX [Suspect]
     Active Substance: AZITHROMYCIN DIHYDRATE
     Indication: CAMPYLOBACTER GASTROENTERITIS
     Dosage: 250 MG, 1X/DAY
     Route: 048
     Dates: start: 20191018, end: 20191021
  2. TIORFAN [Suspect]
     Active Substance: RACECADOTRIL
     Indication: CAMPYLOBACTER GASTROENTERITIS
     Dosage: 3 G, 1X/DAY
     Route: 048
     Dates: start: 20191017, end: 20191019
  3. PHOSPHONEUROS [Concomitant]
     Active Substance: CALCIUM PHOSPHATE, DIBASIC, ANHYDROUS\MAGNESIUM GLYCEROPHOSPHATE\PHOSPHORIC ACID\SODIUM PHOSPHATE, DIBASIC
     Indication: HYPOPHOSPHATASIA
     Dosage: 150 GTT, 1X/DAY
     Route: 048
  4. ROCEPHINE [Suspect]
     Active Substance: CEFTRIAXONE SODIUM
     Indication: CAMPYLOBACTER GASTROENTERITIS
     Dosage: 1 G, 1X/DAY
     Route: 042
     Dates: start: 20191016, end: 20191023
  5. IMOVANE [Concomitant]
     Active Substance: ZOPICLONE
     Indication: INSOMNIA
     Dosage: 3.75 MG, 1X/DAY
     Route: 048
  6. RIAMET [Suspect]
     Active Substance: ARTEMETHER\LUMEFANTRINE
     Indication: PLASMODIUM FALCIPARUM INFECTION
     Dosage: 3 DF, 1X/DAY
     Route: 048
     Dates: start: 20191016, end: 20191018
  7. DOLIPRANE [Concomitant]
     Active Substance: ACETAMINOPHEN
     Indication: PYREXIA
     Dosage: 4 G, 1X/DAY
     Route: 048
  8. PRIMPERAN [Suspect]
     Active Substance: METOCLOPRAMIDE HYDROCHLORIDE
     Indication: NAUSEA
     Dosage: 30 MG, 1X/DAY
     Route: 042
     Dates: start: 20191016, end: 20191017

REACTIONS (1)
  - Coombs negative haemolytic anaemia [Recovering/Resolving]

NARRATIVE: CASE EVENT DATE: 20191018
